FAERS Safety Report 7580160-4 (Version None)
Quarter: 2011Q2

REPORT INFORMATION
  Report Type: 
  Country: None (occurrence: None)
  Receive Date: 20110629
  Receipt Date: 20110606
  Transmission Date: 20111010
  Serious: Yes (Hospitalization)
  Sender: FDA-Public Use
  Company Number: US-BAYER-2011-023515

PATIENT
  Age: 20 Year
  Sex: Female
  Weight: 59.864 kg

DRUGS (19)
  1. ZOLPIDEM [Concomitant]
  2. ALPRAZOLAM [Concomitant]
  3. ZANTAC [Concomitant]
     Dosage: 150 MG, QD
     Route: 048
  4. LORAZEPAM [Concomitant]
  5. CHLORHEXIDINE GLUCONATE [Concomitant]
  6. YASMIN [Suspect]
     Indication: ACNE
     Dosage: UNK
  7. DROSPIRENONE AND ETHINYL ESTRADIOL [Suspect]
  8. AMBIEN [Concomitant]
  9. CARBOFED DM [BROMPHEN MAL,DEXTROMET HBR,PSEUDOEPH HCL] [Concomitant]
  10. PEPCID [Concomitant]
     Route: 048
  11. CIPROFLOXACIN [Concomitant]
  12. PROPOXYPHENE HCL AND ACETAMINOPHEN [Concomitant]
  13. PROCHLORPERAZINE TAB [Concomitant]
  14. CITALOPRAM HYDROBROMIDE [Concomitant]
  15. FLUCONAZOLE [Concomitant]
  16. CEFDINIR [Concomitant]
  17. TUMS [CALCIUM CARBONATE] [Concomitant]
     Route: 048
  18. OMEPRAZOLE [Concomitant]
  19. HYDROCODONE BITARTRATE AND ACETAMINOPHEN [Concomitant]

REACTIONS (1)
  - CHOLECYSTITIS CHRONIC [None]
